FAERS Safety Report 6745304-2 (Version None)
Quarter: 2010Q2

REPORT INFORMATION
  Report Type: 
  Country: None (occurrence: None)
  Receive Date: 20100528
  Receipt Date: 20100519
  Transmission Date: 20101027
  Serious: No
  Sender: FDA-Public Use
  Company Number: US-BIOGENIDEC-2010BI017011

PATIENT
  Age: 56 Year
  Sex: Female

DRUGS (3)
  1. TYSABRI [Suspect]
     Indication: MULTIPLE SCLEROSIS
     Route: 042
     Dates: start: 20050120, end: 20050120
  2. TYSABRI [Suspect]
     Route: 042
     Dates: start: 20061003, end: 20090121
  3. TYSABRI [Suspect]
     Route: 042
     Dates: start: 20090930

REACTIONS (3)
  - HERPES ZOSTER [None]
  - IMMUNE SYSTEM DISORDER [None]
  - URINARY TRACT INFECTION [None]
